FAERS Safety Report 7246490-0 (Version None)
Quarter: 2011Q1

REPORT INFORMATION
  Report Type: 
  Country: None (occurrence: None)
  Receive Date: 20110126
  Receipt Date: 20110120
  Transmission Date: 20110831
  Serious: Yes (Hospitalization)
  Sender: FDA-Public Use
  Company Number: US-AMGEN-USASP2011003665

PATIENT
  Age: 60 Year
  Sex: Female

DRUGS (2)
  1. ENBREL [Suspect]
     Indication: RHEUMATOID ARTHRITIS
     Dosage: 50 MG, QWK
     Dates: start: 20010101
  2. TREXALL [Concomitant]
     Dates: start: 20010101

REACTIONS (8)
  - INJECTION SITE PRURITUS [None]
  - ARTHRALGIA [None]
  - LABORATORY TEST ABNORMAL [None]
  - INJECTION SITE PAIN [None]
  - DIARRHOEA [None]
  - INJECTION SITE INFLAMMATION [None]
  - HIP FRACTURE [None]
  - INJECTION SITE ERYTHEMA [None]
